FAERS Safety Report 4450359-4 (Version None)
Quarter: 2004Q3

REPORT INFORMATION
  Report Type: 
  Country: None (occurrence: None)
  Receive Date: 20040915
  Receipt Date: 20040910
  Transmission Date: 20050211
  Serious: Yes (Other)
  Sender: FDA-Public Use
  Company Number: 002680

PATIENT
  Age: 63 Year
  Sex: Female

DRUGS (6)
  1. MEDROXYPROGESTERONE ACETATE [Suspect]
     Dates: start: 19971001, end: 19981201
  2. ESTRADIOL [Suspect]
     Dates: start: 19980101, end: 19990801
  3. ESTRACE [Suspect]
     Dates: start: 19970701, end: 19971101
  4. CYCRIN [Suspect]
     Dates: start: 19970801, end: 19970901
  5. ESTRATAB [Suspect]
     Dates: start: 19980401, end: 19990801
  6. PROMETRIUM [Suspect]
     Dates: start: 19990201, end: 19990101

REACTIONS (1)
  - BREAST CANCER [None]
